FAERS Safety Report 8808850 (Version 1)
Quarter: 2012Q4

REPORT INFORMATION
  Report Type: 
  Country: US (occurrence: US)
  Receive Date: 20120926
  Receipt Date: 20120926
  Transmission Date: 20130627
  Serious: Yes (Other)
  Sender: FDA-Public Use
  Company Number: US-PFIZER INC-2012236753

PATIENT
  Age: 62 Year
  Sex: Female
  Weight: 54.42 kg

DRUGS (2)
  1. DILANTIN [Suspect]
     Indication: CONVULSION
     Dosage: 100 mg, 3x/day
     Route: 048
     Dates: start: 1949
  2. DILANTIN [Suspect]
     Dosage: 100 mg, 3x/day
     Route: 048
     Dates: start: 1966

REACTIONS (2)
  - Fall [Unknown]
  - Upper limb fracture [Unknown]
